FAERS Safety Report 5002664-0 (Version None)
Quarter: 2006Q2

REPORT INFORMATION
  Report Type: 
  Country: None (occurrence: None)
  Receive Date: 20060510
  Receipt Date: 20060427
  Transmission Date: 20061013
  Serious: Yes (Death, Hospitalization)
  Sender: FDA-Public Use
  Company Number: 220561

PATIENT
  Sex: 0

DRUGS (22)
  1. AVASTIN [Suspect]
     Indication: COLORECTAL CANCER METASTATIC
     Dosage: 510  MG, INTRAVENOUS
     Route: 042
     Dates: start: 20051201
  2. XELODA [Suspect]
     Indication: COLORECTAL CANCER METASTATIC
     Dosage: 3300 MG, QD, ORAL
     Route: 048
     Dates: start: 20051201
  3. NEXIUM [Concomitant]
  4. ACTONEL [Concomitant]
  5. TEMAZEPAM [Concomitant]
  6. ASPIRIN [Concomitant]
  7. SOLPRIN (ASPIRIN, CALCIUM CARBONATE, CITRIC ACID) [Concomitant]
  8. RABEPRAZOLE SODIUM [Concomitant]
  9. SALBUTAMOL       (ALBUTEROL/ALBUTEROL SULFATE) [Concomitant]
  10. FLAGYL [Concomitant]
  11. HYDROCORTISONE [Concomitant]
  12. PANTOPRAZOLE SODIUM [Concomitant]
  13. LASIX [Concomitant]
  14. DIAMICRON (GLICLAZIDE) [Concomitant]
  15. MICARDIS PLUS       (HYDROCHLOROTHIAZIDE, TELMISARTAN) [Concomitant]
  16. INDERAL [Concomitant]
  17. PREDNISONE TAB [Concomitant]
  18. CEFTRIAXONE [Concomitant]
  19. RULIDE (ROXITHROMYCIN) [Concomitant]
  20. DIABEX (METFORMIN) [Concomitant]
  21. NITRATES NOS (NITRATES NOS) [Concomitant]
  22. CARDIZEM [Concomitant]

REACTIONS (5)
  - ARTERIOSPASM CORONARY [None]
  - INTESTINAL OBSTRUCTION [None]
  - METASTASES TO PERITONEUM [None]
  - PULMONARY EMBOLISM [None]
  - SEPSIS [None]
